FAERS Safety Report 6033881-9 (Version None)
Quarter: 2009Q1

REPORT INFORMATION
  Report Type: 
  Country: None (occurrence: None)
  Receive Date: 20090109
  Receipt Date: 20090109
  Transmission Date: 20090719
  Serious: No
  Sender: FDA-Public Use
  Company Number: None

PATIENT
  Sex: Female

DRUGS (2)
  1. METFORMIN HCL [Suspect]
  2. GLUCOPHAGE XL [Suspect]

REACTIONS (5)
  - ANOREXIA [None]
  - DIVERTICULITIS [None]
  - ILEAL ULCER [None]
  - PRODUCT QUALITY ISSUE [None]
  - WEIGHT DECREASED [None]
